FAERS Safety Report 10155626 (Version 1)
Quarter: 2014Q2

REPORT INFORMATION
  Report Type: Report from Study
  Country: GB (occurrence: GB)
  Receive Date: 20140506
  Receipt Date: 20140506
  Transmission Date: 20141212
  Serious: Yes (Other)
  Sender: FDA-Public Use
  Company Number: GB-ASTELLAS-2014EU004398

PATIENT
  Age: 39 Year
  Sex: Female

DRUGS (3)
  1. TACROLIMUS [Suspect]
     Indication: LUNG TRANSPLANT
     Route: 065
  2. TACROLIMUS [Suspect]
     Route: 065
  3. TACROLIMUS [Suspect]
     Route: 065

REACTIONS (5)
  - Off label use [Unknown]
  - Exposure during pregnancy [Unknown]
  - Diabetes mellitus [Unknown]
  - Pneumonia [Unknown]
  - Obliterative bronchiolitis [Unknown]
